FAERS Safety Report 5066910-X (Version None)
Quarter: 2006Q3

REPORT INFORMATION
  Report Type: 
  Country: None (occurrence: None)
  Receive Date: 20060726
  Receipt Date: 20060718
  Transmission Date: 20061208
  Serious: Yes (Hospitalization, Other)
  Sender: FDA-Public Use
  Company Number: THQ2006A00324

PATIENT
  Age: 73 Year
  Sex: Male

DRUGS (19)
  1. ACTOS [Suspect]
     Indication: DIABETES MELLITUS
     Dosage: SEE IMAGE, ORAL
     Route: 048
     Dates: start: 20060101, end: 20060101
  2. ACTOS [Suspect]
     Indication: DIABETES MELLITUS
     Dosage: SEE IMAGE, ORAL
     Route: 048
     Dates: end: 20060101
  3. CYANOCOBALAMIN [Concomitant]
  4. FOLIC ACID [Concomitant]
  5. SIMVASTATIN [Concomitant]
  6. IRBESARTAN [Concomitant]
  7. METOPROLOL [Concomitant]
  8. TERAZOSIN HCL [Concomitant]
  9. ZANTAC [Concomitant]
  10. COUMADIN [Concomitant]
  11. LASIX [Concomitant]
  12. LIPITOR [Concomitant]
  13. PROZAC [Concomitant]
  14. ASPIRIN [Concomitant]
  15. GUCOSAMINE [Concomitant]
  16. TYLENOL [Concomitant]
  17. CALCIUM GLUCONATE [Concomitant]
  18. ERGOCALCIFEROL, ASCORBIC ACID, FOLIC ACID, THIAMINE HYDROCHLORIDE, RET [Concomitant]
  19. VITAMIN B6 [Concomitant]

REACTIONS (29)
  - ACUTE PULMONARY OEDEMA [None]
  - AORTIC VALVE INCOMPETENCE [None]
  - ATRIAL FIBRILLATION [None]
  - BLOOD CREATININE INCREASED [None]
  - BLOOD GLUCOSE INCREASED [None]
  - BLOOD PRESSURE DECREASED [None]
  - BLOOD PRESSURE SYSTOLIC INCREASED [None]
  - BLOOD UREA INCREASED [None]
  - BURSITIS [None]
  - CARDIAC FAILURE CONGESTIVE [None]
  - CELLULITIS [None]
  - CHRONIC OBSTRUCTIVE PULMONARY DISEASE [None]
  - CREPITATIONS [None]
  - DILATATION ATRIAL [None]
  - DYSPNOEA [None]
  - GAIT DISTURBANCE [None]
  - GLOMERULAR FILTRATION RATE DECREASED [None]
  - GLYCOSYLATED HAEMOGLOBIN INCREASED [None]
  - HEART RATE IRREGULAR [None]
  - HEPATOJUGULAR REFLUX [None]
  - MITRAL VALVE INCOMPETENCE [None]
  - MITRAL VALVE STENOSIS [None]
  - OEDEMA PERIPHERAL [None]
  - PNEUMONIA [None]
  - POLLAKIURIA [None]
  - RESPIRATORY FAILURE [None]
  - SKIN ULCER [None]
  - URINARY INCONTINENCE [None]
  - VISION BLURRED [None]
